FAERS Safety Report 5453532-1 (Version None)
Quarter: 2007Q3

REPORT INFORMATION
  Report Type: 
  Country: None (occurrence: None)
  Receive Date: 20070913
  Receipt Date: 20070830
  Transmission Date: 20080115
  Serious: Yes (Death)
  Sender: FDA-Public Use
  Company Number: 200709AGG00711

PATIENT
  Age: 72 Year
  Sex: Male
  Weight: 70 kg

DRUGS (7)
  1. AGGRASTAT [Suspect]
     Indication: CARDIAC ENZYMES INCREASED
     Dosage: INTRAVENOUS (NOT OTHERWISE SPECIFIED)
     Route: 042
  2. CLOPIDOGREL BISULFATE [Concomitant]
  3. HEPARIN [Concomitant]
  4. INSULIN [Concomitant]
  5. METFORMIN HCL [Concomitant]
  6. ASPIRIN [Concomitant]
  7. TICLOPIDINE HYDROCHLORIDE [Concomitant]

REACTIONS (1)
  - DEATH [None]
